FAERS Safety Report 7534277-0 (Version None)
Quarter: 2011Q2

REPORT INFORMATION
  Report Type: 
  Country: None (occurrence: None)
  Receive Date: 20110608
  Receipt Date: 20070222
  Transmission Date: 20111010
  Serious: Yes (Life-Threatening, Hospitalization)
  Sender: FDA-Public Use
  Company Number: PHHO2007IL03530

PATIENT
  Age: 13 Year
  Sex: Female

DRUGS (1)
  1. RITALIN [Suspect]
     Dates: start: 20070216, end: 20070216

REACTIONS (3)
  - SUICIDE ATTEMPT [None]
  - URINE OUTPUT DECREASED [None]
  - INTENTIONAL OVERDOSE [None]
